FAERS Safety Report 7518527-2 (Version None)
Quarter: 2011Q2

REPORT INFORMATION
  Report Type: 
  Country: None (occurrence: None)
  Receive Date: 20110601
  Receipt Date: 20110601
  Transmission Date: 20111010
  Serious: Yes (Other)
  Sender: FDA-Public Use
  Company Number: None

PATIENT
  Age: 13 Year
  Sex: Female
  Weight: 57.6068 kg

DRUGS (1)
  1. LEVAQUIN [Suspect]

REACTIONS (16)
  - NAUSEA [None]
  - CRYING [None]
  - PAIN [None]
  - MYALGIA [None]
  - ARTHRALGIA [None]
  - MUSCULOSKELETAL PAIN [None]
  - JOINT CREPITATION [None]
  - INITIAL INSOMNIA [None]
  - WALKING AID USER [None]
  - MIDDLE INSOMNIA [None]
  - TENDON PAIN [None]
  - DEPRESSION [None]
  - JOINT SWELLING [None]
  - JOINT EFFUSION [None]
  - SWELLING FACE [None]
  - ABDOMINAL PAIN UPPER [None]
